APPROVED DRUG PRODUCT: IMPEKLO
Active Ingredient: CLOBETASOL PROPIONATE
Strength: 0.05%
Dosage Form/Route: LOTION;TOPICAL
Application: N213691 | Product #001
Applicant: PHARMOBEDIENT CONSULTING LLC
Approved: May 19, 2020 | RLD: Yes | RS: No | Type: DISCN